FAERS Safety Report 14239528 (Version 1)
Quarter: 2017Q4

REPORT INFORMATION
  Report Type: Spontaneous
  Country: US (occurrence: None)
  Receive Date: 20171129
  Receipt Date: 20171129
  Transmission Date: 20180321
  Serious: No
  Sender: FDA-Public Use
  Company Number: None

PATIENT
  Age: 62 Year
  Sex: Male

DRUGS (1)
  1. TENOFOVIR [Suspect]
     Active Substance: TENOFOVIR
     Indication: HIV INFECTION
     Route: 048
     Dates: start: 20170606, end: 20171109

REACTIONS (3)
  - Glycosuria [None]
  - Hypophosphataemia [None]
  - Acute kidney injury [None]

NARRATIVE: CASE EVENT DATE: 20171031
